FAERS Safety Report 6545709-9 (Version None)
Quarter: 2010Q1

REPORT INFORMATION
  Report Type: 
  Country: None (occurrence: None)
  Receive Date: 20100121
  Receipt Date: 20100114
  Transmission Date: 20100710
  Serious: Yes (Death, Hospitalization, Other)
  Sender: FDA-Public Use
  Company Number: PHHY2009BR49460

PATIENT
  Sex: Male

DRUGS (2)
  1. DIOVAN [Suspect]
  2. ANTICOAGULANTS [Concomitant]

REACTIONS (6)
  - ANGIOPATHY [None]
  - ANGIOPLASTY [None]
  - CARDIOGENIC SHOCK [None]
  - DIABETES MELLITUS [None]
  - INFARCTION [None]
  - RENAL FAILURE [None]
